APPROVED DRUG PRODUCT: STILBETIN
Active Ingredient: DIETHYLSTILBESTROL
Strength: 1MG
Dosage Form/Route: TABLET;ORAL
Application: N004056 | Product #009
Applicant: BRISTOL MYERS SQUIBB
Approved: Approved Prior to Jan 1, 1982 | RLD: No | RS: No | Type: DISCN